FAERS Safety Report 8591940-0 (Version None)
Quarter: 2012Q3

REPORT INFORMATION
  Report Type: 
  Country: None (occurrence: None)
  Receive Date: 20120814
  Receipt Date: 20120808
  Transmission Date: 20120928
  Serious: Yes (Other)
  Sender: FDA-Public Use
  Company Number: US-PFIZER INC-2012194289

PATIENT
  Age: 58 Year
  Sex: Male
  Weight: 106.58 kg

DRUGS (9)
  1. ALLOPURINOL [Concomitant]
     Dosage: UNK
  2. OXYCODONE [Concomitant]
     Dosage: UNK
  3. LYRICA [Suspect]
     Indication: NEUROPATHY PERIPHERAL
     Dosage: 75 MG, 3X/DAY
     Route: 048
     Dates: start: 20090101, end: 20120701
  4. VIAGRA [Suspect]
     Indication: ERECTILE DYSFUNCTION
     Dosage: 50 MG, AS NEEDED
     Route: 048
     Dates: start: 20120501
  5. CLONAZEPAM [Concomitant]
     Dosage: 1 MG, UNK
  6. LISINOPRIL [Concomitant]
     Dosage: 20 MG, UNK
  7. TRAMADOL [Concomitant]
     Dosage: 50 MG, UNK
  8. DIAZEPAM [Concomitant]
     Dosage: UNK
  9. BUPROPION [Concomitant]
     Dosage: UNK

REACTIONS (4)
  - ERECTILE DYSFUNCTION [None]
  - MOOD SWINGS [None]
  - HYPOAESTHESIA [None]
  - PARAESTHESIA [None]
